FAERS Safety Report 15740415 (Version 6)
Quarter: 2019Q1

REPORT INFORMATION
  Report Type: Report from Study
  Country: KR (occurrence: KR)
  Receive Date: 20181219
  Receipt Date: 20190307
  Transmission Date: 20190417
  Serious: Yes (Hospitalization)
  Sender: FDA-Public Use
  Company Number: KR-PFIZER INC-2018509162

PATIENT
  Age: 37 Year
  Sex: Male
  Weight: 68.9 kg

DRUGS (137)
  1. ZALTOPROFEN [Concomitant]
     Active Substance: ZALTOPROFEN
     Dosage: 240 MG, 3X/DAY
     Route: 048
     Dates: start: 20161219, end: 20161223
  2. INFLUENZA VIRUS [Concomitant]
     Active Substance: INFLUENZA VIRUS VACCINE
     Dosage: 0.5 ML, ONCE
     Route: 030
     Dates: start: 20171114, end: 20171114
  3. ACETAMINOPHEN. [Concomitant]
     Active Substance: ACETAMINOPHEN
     Dosage: 900 MG, 2X/DAY
     Route: 048
     Dates: start: 20150425, end: 20150425
  4. HEPARIN [Concomitant]
     Active Substance: HEPARIN SODIUM
     Dosage: 1000 IU, ONCE
     Route: 042
     Dates: start: 20180424, end: 20180424
  5. METOCLOPRAMIDE. [Concomitant]
     Active Substance: METOCLOPRAMIDE
     Dosage: 10 MG, ONCE
     Route: 042
     Dates: start: 20181209, end: 20181209
  6. TEICOPLANIN [Concomitant]
     Active Substance: TEICOPLANIN
     Dosage: 800 MG, ONCE
     Route: 042
     Dates: start: 20181207, end: 20181207
  7. COUGH SYRUP [Concomitant]
     Active Substance: DEXTROMETHORPHAN HYDROBROMIDE\GUAIFENESIN
     Dosage: 20 ML, 3X/DAY
     Route: 048
     Dates: start: 20181215, end: 20181220
  8. MOXICLE [Concomitant]
     Dosage: 625 MG, 3X/DAY
     Route: 048
     Dates: start: 20181215, end: 20181215
  9. TRAMADOL. [Concomitant]
     Active Substance: TRAMADOL
     Dosage: 50 MG, 3X/DAY
     Route: 042
     Dates: start: 20181206, end: 20181206
  10. TRAMADOL. [Concomitant]
     Active Substance: TRAMADOL
     Dosage: 50 MG, 2X/DAY
     Route: 042
     Dates: start: 20181207, end: 20181207
  11. TAZOPERAN [Concomitant]
     Dosage: 4.5 G, ONCE
     Route: 042
     Dates: start: 20150608, end: 20150608
  12. METOCLOPRAMIDE. [Concomitant]
     Active Substance: METOCLOPRAMIDE
     Indication: BIOPSY BONE MARROW
     Dosage: 10 MG, ONCE
     Route: 042
     Dates: start: 20150130, end: 20150130
  13. DEXTROSE. [Concomitant]
     Active Substance: DEXTROSE
     Dosage: 1200 ML, ONCE
     Route: 042
     Dates: start: 20150129, end: 20150130
  14. MIDAZOLAM [Concomitant]
     Active Substance: MIDAZOLAM HYDROCHLORIDE
     Dosage: 5 ML, ONCE
     Route: 042
     Dates: start: 20170906, end: 20170906
  15. PSEUDOEPHEDRINE. [Concomitant]
     Active Substance: PSEUDOEPHEDRINE HYDROCHLORIDE
     Dosage: 60 MG, 2X/DAY
     Route: 048
     Dates: start: 20180428, end: 20180428
  16. SODIUM HYALURONATE [Concomitant]
     Active Substance: HYALURONATE SODIUM
     Dosage: 0.5 ML, AS NEEDED (OCULAR)
     Route: 047
     Dates: start: 20180428, end: 20180428
  17. INFLUENZA VIRUS [Concomitant]
     Active Substance: INFLUENZA VIRUS VACCINE
     Dosage: 0.5 ML, ONCE
     Route: 030
     Dates: start: 20181018, end: 20181018
  18. MOSAPRIDE [Concomitant]
     Active Substance: MOSAPRIDE
     Dosage: 5 MG, 3X/DAY
     Route: 048
     Dates: start: 20170908, end: 20170914
  19. CLARITHROMYCIN. [Concomitant]
     Active Substance: CLARITHROMYCIN
     Dosage: 500 MG, 2X/DAY
     Route: 048
     Dates: start: 20170914, end: 20170920
  20. ACETAMINOPHEN. [Concomitant]
     Active Substance: ACETAMINOPHEN
     Dosage: 650 MG, ONCE
     Route: 048
     Dates: start: 20181206, end: 20181206
  21. POTASSIUM CHLORIDE. [Concomitant]
     Active Substance: POTASSIUM CHLORIDE
     Dosage: 20 MEQ, SINGLE
     Route: 042
     Dates: start: 20181208, end: 20181213
  22. URSODEOXYCHOLIC ACID [Concomitant]
     Active Substance: URSODIOL
     Dosage: 100 MG, 2X/DAY
     Route: 048
     Dates: start: 20181207, end: 20181208
  23. BOSUTINIB [Suspect]
     Active Substance: BOSUTINIB
     Indication: MYELOID LEUKAEMIA
     Dosage: 400 MG, 1X/DAY
     Route: 048
     Dates: start: 20150213, end: 20150603
  24. ISEPAMICIN [Concomitant]
     Active Substance: ISEPAMICIN
     Dosage: 400 MG, ONCE
     Route: 042
     Dates: start: 20150604, end: 20150605
  25. TRAMADOL. [Concomitant]
     Active Substance: TRAMADOL
     Dosage: 50 MG, ONCE
     Route: 042
     Dates: start: 20180425, end: 20180426
  26. TAZOPERAN [Concomitant]
     Dosage: 4.5 G, 3X/DAY
     Route: 042
     Dates: start: 20150607, end: 20150607
  27. MORPHINE [Concomitant]
     Active Substance: MORPHINE
     Indication: BIOPSY BONE MARROW
     Dosage: 3 MG, AS NEEDED
     Route: 042
     Dates: start: 20150129, end: 20150129
  28. CEFTAZIDIME. [Concomitant]
     Active Substance: CEFTAZIDIME
     Indication: BIOPSY BONE MARROW
     Dosage: 2 GR ONCE
     Route: 042
     Dates: start: 20150130, end: 20150201
  29. ISEPAMICIN [Concomitant]
     Active Substance: ISEPAMICIN
     Indication: BIOPSY BONE MARROW
     Dosage: 400 MG, ONCE
     Dates: start: 20150130, end: 20150201
  30. SODIUM CHLORIDE. [Concomitant]
     Active Substance: SODIUM CHLORIDE
     Dosage: 100 ML, ONCE
     Route: 042
     Dates: start: 20150605, end: 20150605
  31. SODIUM CHLORIDE. [Concomitant]
     Active Substance: SODIUM CHLORIDE
     Indication: VEIN DISORDER
     Dosage: 100 ML, ONCE
     Route: 042
     Dates: start: 20150130, end: 20150202
  32. DICLOFENAC [Concomitant]
     Active Substance: DICLOFENAC
     Dosage: 75 UG, ONCE
     Route: 042
     Dates: start: 20161219, end: 20161219
  33. CLINDAMYCIN. [Concomitant]
     Active Substance: CLINDAMYCIN
     Dosage: 300 MG, ONCE
     Route: 042
     Dates: start: 20161219, end: 20161219
  34. PSEUDOEPHEDRINE. [Concomitant]
     Active Substance: PSEUDOEPHEDRINE HYDROCHLORIDE
     Dosage: 60 MG, ONCE
     Route: 048
     Dates: start: 20180430, end: 20180430
  35. REBAMIPIDE [Concomitant]
     Active Substance: REBAMIPIDE
     Dosage: 100 MG, 3X/DAY
     Route: 048
     Dates: start: 20180428, end: 20180507
  36. BESZYME [Concomitant]
     Dosage: 1 DF, ONCE
     Route: 048
     Dates: start: 20181209, end: 20181209
  37. MEDIUM CHAIN TRIGLYCERIDES [Concomitant]
     Dosage: 500 MG, ONCE
     Route: 042
     Dates: start: 20181208, end: 20181209
  38. BACTACIN [Concomitant]
     Dosage: 3 G, SINGLE
     Route: 042
     Dates: start: 20181207, end: 20181207
  39. SODIUM CHLORIDE. [Concomitant]
     Active Substance: SODIUM CHLORIDE
     Dosage: 1000 ML, ONCE
     Route: 042
     Dates: start: 20181214
  40. SODIUM CHLORIDE. [Concomitant]
     Active Substance: SODIUM CHLORIDE
     Dosage: 1000 ML, AS NEEDED
     Route: 042
     Dates: start: 20181206, end: 20181214
  41. BOSUTINIB [Suspect]
     Active Substance: BOSUTINIB
     Dosage: 300 MG, 1X/DAY
     Route: 048
     Dates: start: 20180509
  42. CEFTAZIDIME. [Concomitant]
     Active Substance: CEFTAZIDIME
     Dosage: 2 G, 2X/DAY
     Route: 042
     Dates: start: 20150605, end: 20150605
  43. CEFTAZIDIME. [Concomitant]
     Active Substance: CEFTAZIDIME
     Dosage: 4 G, ONCE
     Route: 042
     Dates: start: 20150605, end: 20150605
  44. SODIUM CHLORIDE. [Concomitant]
     Active Substance: SODIUM CHLORIDE
     Dosage: 100 ML, ONCE
     Route: 042
     Dates: start: 20161219, end: 20161219
  45. SODIUM CHLORIDE. [Concomitant]
     Active Substance: SODIUM CHLORIDE
     Dosage: 1000 ML, ONCE
     Route: 042
     Dates: start: 20181207, end: 20181207
  46. PETHIDINE [Concomitant]
     Active Substance: MEPERIDINE
     Dosage: 25 MG, ONCE
     Route: 042
     Dates: start: 20150730, end: 20150730
  47. LIDOCAINE. [Concomitant]
     Active Substance: LIDOCAINE
     Dosage: 3.6 ML, ONCE
     Route: 042
     Dates: start: 20161219, end: 20161219
  48. ACETAMINOPHEN. [Concomitant]
     Active Substance: ACETAMINOPHEN
     Dosage: 1300 MG, 3X/DAY
     Route: 048
     Dates: start: 20180320, end: 20180322
  49. ACETAMINOPHEN. [Concomitant]
     Active Substance: ACETAMINOPHEN
     Dosage: 650 MG, 2X/DAY
     Route: 048
     Dates: start: 20180426, end: 20180426
  50. BESZYME [Concomitant]
     Dosage: 1 DF, 3X/DAY
     Route: 048
     Dates: start: 20180320, end: 20180401
  51. URSODEOXYCHOLIC ACID [Concomitant]
     Active Substance: URSODIOL
     Dosage: 100 MG, 2X/DAY
     Route: 048
     Dates: start: 20181209, end: 20181211
  52. NAPROXEN. [Concomitant]
     Active Substance: NAPROXEN
     Dosage: 500 MG, 2X/DAY
     Route: 048
     Dates: start: 20181210, end: 20181211
  53. DEXLANSOPRAZOLE [Concomitant]
     Active Substance: DEXLANSOPRAZOLE
     Dosage: 30 MG, ONCE
     Route: 048
     Dates: start: 20181211, end: 20181212
  54. FUROSEMIDE. [Concomitant]
     Active Substance: FUROSEMIDE
     Dosage: 20 MG, ONCE
     Route: 042
     Dates: start: 20181214, end: 20181214
  55. BACTACIN [Concomitant]
     Dosage: 3 G, 3X/DAY
     Route: 042
     Dates: start: 20181208, end: 20181208
  56. LEGALON [Concomitant]
     Active Substance: DIETARY SUPPLEMENT\HERBALS\MILK THISTLE
     Dosage: 140 MG, 3X/DAY
     Route: 048
     Dates: start: 20181215, end: 20181220
  57. PETHIDINE [Concomitant]
     Active Substance: MEPERIDINE
     Indication: BIOPSY BONE MARROW
     Dosage: 25 MG, AS NEEDED
     Route: 042
     Dates: start: 20150130, end: 20150130
  58. DEXTROSE. [Concomitant]
     Active Substance: DEXTROSE
     Indication: VEIN DISORDER
     Dosage: 1000 ML, ONCE
     Route: 042
     Dates: start: 20150128, end: 20150128
  59. DEXTROSE. [Concomitant]
     Active Substance: DEXTROSE
     Dosage: 1000 ML, ONCE
     Route: 042
     Dates: start: 20150201, end: 20150203
  60. LIDOCAINE. [Concomitant]
     Active Substance: LIDOCAINE
     Dosage: 10 ML, ONCE
     Route: 042
     Dates: start: 20150507, end: 20150507
  61. FERROUS SULFATE. [Concomitant]
     Active Substance: FERROUS SULFATE
     Dosage: 256 MG, 2X/DAY
     Route: 048
     Dates: start: 20180320, end: 20180430
  62. CLINDAMYCIN. [Concomitant]
     Active Substance: CLINDAMYCIN
     Dosage: 600 MG, 4X/DAY
     Route: 048
     Dates: start: 20161220, end: 20161223
  63. CIMETROPIUM [Concomitant]
     Dosage: 5 MG, ONCE
     Route: 042
     Dates: start: 20170906, end: 20170906
  64. FUROSEMIDE. [Concomitant]
     Active Substance: FUROSEMIDE
     Dosage: 20 MG, ONCE
     Route: 042
     Dates: start: 20180427, end: 20180427
  65. LEVODROPROPIZINE [Concomitant]
     Active Substance: LEVODROPROPIZINE
     Dosage: 60 MG, 3X/DAY
     Route: 048
     Dates: start: 20180427, end: 20180429
  66. LEGALON [Concomitant]
     Active Substance: DIETARY SUPPLEMENT\HERBALS\MILK THISTLE
     Dosage: 140 MG, ONCE
     Route: 048
     Dates: start: 20180501, end: 20180501
  67. AZELASTINE. [Concomitant]
     Active Substance: AZELASTINE HYDROCHLORIDE
     Dosage: 1 MG, ONCE
     Route: 048
     Dates: start: 20180428, end: 20180429
  68. PSEUDOEPHEDRINE. [Concomitant]
     Active Substance: PSEUDOEPHEDRINE HYDROCHLORIDE
     Dosage: 60 MG, ONCE
     Route: 048
     Dates: start: 20180429, end: 20180429
  69. REBAMIPIDE [Concomitant]
     Active Substance: REBAMIPIDE
     Dosage: 100 MG, ONCE
     Route: 048
     Dates: start: 20180501, end: 20180501
  70. LANSOPRAZOLE. [Concomitant]
     Active Substance: LANSOPRAZOLE
     Dosage: 60 MG, ONCE
     Route: 048
     Dates: start: 20170908, end: 20170914
  71. ACETAMINOPHEN. [Concomitant]
     Active Substance: ACETAMINOPHEN
     Dosage: 650 MG, 3X/DAY
     Route: 048
     Dates: start: 20181207, end: 20181207
  72. BACITRACIN. [Concomitant]
     Active Substance: BACITRACIN
     Dosage: 3 MG, 2X/DAY
     Route: 042
     Dates: start: 20181207, end: 20181207
  73. CEFTRIAXONE. [Concomitant]
     Active Substance: CEFTRIAXONE
     Dosage: 2 MG, ONCE
     Route: 042
     Dates: start: 20181206, end: 20181206
  74. COUGH SYRUP [Concomitant]
     Active Substance: DEXTROMETHORPHAN HYDROBROMIDE\GUAIFENESIN
     Dosage: 20 ML, ONCE
     Route: 048
     Dates: start: 20181214, end: 20181214
  75. BACTACIN [Concomitant]
     Dosage: 3 G, SINGLE
     Route: 042
     Dates: start: 20181214, end: 20181214
  76. ALLOPURINOL. [Concomitant]
     Active Substance: ALLOPURINOL
     Dosage: 300 MG, 3X/DAY
     Route: 048
     Dates: start: 20150129, end: 20150131
  77. DEXTROSE W/POTASSIUM CHLORIDE/SODIUM CHLORIDE [Concomitant]
     Dosage: DEXTROSE 50G/NACL 4.5G/KCL 1.5G IN 1L; 2000MG ONCE
     Route: 042
     Dates: start: 20150606, end: 20150606
  78. SODIUM CHLORIDE. [Concomitant]
     Active Substance: SODIUM CHLORIDE
     Indication: VEHICLE SOLUTION USE
     Dosage: 50 ML, ONCE
     Route: 042
     Dates: start: 20150203, end: 20150203
  79. ALUMINUM HYDROXIDE [ALUMINIUM HYDROXIDE] [Concomitant]
     Active Substance: ALUMINUM HYDROXIDE
     Dosage: 300 MG, 3X/DAY
     Route: 048
     Dates: start: 20180320, end: 20180322
  80. SIMETHICONE (DIMETHICONE) [Concomitant]
     Active Substance: DIMETHICONE
     Dosage: 10 ML, ONCE
     Route: 048
     Dates: start: 20170906, end: 20170906
  81. MOXICLE [AMOXICILLIN SODIUM;CLAVULANATE POTASSIUM] [Concomitant]
     Dosage: 625 MG, 3X/DAY
     Route: 048
     Dates: start: 20180501, end: 20180507
  82. ENDONASE F [Concomitant]
     Dosage: 1.5 GR, ONCE (POW)
     Route: 042
     Dates: start: 20170906, end: 20170906
  83. ASPARAGINE-L-ORNITHINE [Concomitant]
     Dosage: 1000 MG, DAILY
     Route: 042
     Dates: start: 20181207, end: 20181213
  84. PHAZYME [SIMETICONE] [Concomitant]
     Dosage: 95 MG, ONCE
     Route: 048
     Dates: start: 20181210, end: 20181210
  85. ORNITHINE OXOGLURATE [Concomitant]
     Active Substance: ORNITHINE OXOGLURATE
     Dosage: 1000 MG, DAILY
     Route: 042
     Dates: start: 20181207, end: 20181213
  86. DIOCTAHEDRAL SMECTITE [Concomitant]
     Dosage: 20 ML, ONCE
     Route: 048
     Dates: start: 20181209, end: 20181213
  87. COUGH SYRUP [Concomitant]
     Active Substance: DEXTROMETHORPHAN HYDROBROMIDE\GUAIFENESIN
     Dosage: 20 ML, ONCE
     Route: 048
     Dates: start: 20181211, end: 20181211
  88. BACTACIN [Concomitant]
     Dosage: 3 G, 4X/DAY
     Route: 042
     Dates: start: 20181209, end: 20181213
  89. BOSUTINIB [Suspect]
     Active Substance: BOSUTINIB
     Dosage: 400 MG, 1X/DAY
     Route: 048
     Dates: start: 20150617, end: 20180424
  90. ALLOPURINOL. [Concomitant]
     Active Substance: ALLOPURINOL
     Dosage: 100 MG, 2X/DAY
     Route: 048
     Dates: start: 20150201, end: 20150201
  91. TRAMADOL. [Concomitant]
     Active Substance: TRAMADOL
     Dosage: 50 MG, ONCE
     Route: 042
     Dates: start: 20181209, end: 20181210
  92. DEXTROSE W/POTASSIUM CHLORIDE/SODIUM CHLORIDE [Concomitant]
     Dosage: DEXTROSE ELECTROLYTE/NACL/KCL 20MEQ; 1000MG ONCE
     Route: 042
     Dates: start: 20180424, end: 20180426
  93. SODIUM CHLORIDE. [Concomitant]
     Active Substance: SODIUM CHLORIDE
     Dosage: 100 ML, ONCE
     Route: 042
     Dates: start: 20150604, end: 20150604
  94. SODIUM CHLORIDE. [Concomitant]
     Active Substance: SODIUM CHLORIDE
     Dosage: 100 ML, AS NEEDED
     Route: 042
     Dates: start: 20180425, end: 20180501
  95. SODIUM CHLORIDE. [Concomitant]
     Active Substance: SODIUM CHLORIDE
     Dosage: 1000 ML, 4X/DAY
     Route: 042
     Dates: start: 20181208, end: 20181213
  96. PETHIDINE [Concomitant]
     Active Substance: MEPERIDINE
     Dosage: 25 MG, ONCE
     Route: 042
     Dates: start: 20150507, end: 20150507
  97. LIDOCAINE. [Concomitant]
     Active Substance: LIDOCAINE
     Dosage: 10 ML, ONCE
     Route: 042
     Dates: start: 20150730, end: 20150730
  98. ALUMINUM HYDROXIDE [ALUMINIUM HYDROXIDE] [Concomitant]
     Active Substance: ALUMINUM HYDROXIDE
     Dosage: 600 MG, 2X/DAY
     Route: 048
     Dates: start: 20160923, end: 20161214
  99. NUTRIFLEX LIPID PERI [Concomitant]
     Dosage: 1250 ML, ONCE
     Route: 042
     Dates: start: 20180428, end: 20180430
  100. AMOXICILLIN. [Concomitant]
     Active Substance: AMOXICILLIN
     Dosage: 1000 MG, 2X/DAY
     Route: 048
     Dates: start: 20170914, end: 20170920
  101. ACETAMINOPHEN. [Concomitant]
     Active Substance: ACETAMINOPHEN
     Dosage: 650 MG, 3X/DAY
     Route: 048
     Dates: start: 20181209, end: 20181211
  102. MOXIFLOXACIN [MOXIFLOXACIN HYDROCHLORIDE] [Concomitant]
     Dosage: 5 ML, AS NEEDED (OCULAR)
     Route: 047
     Dates: start: 20180425, end: 20180428
  103. SILYMARIN [Concomitant]
     Active Substance: DIETARY SUPPLEMENT\HERBALS\MILK THISTLE
     Dosage: 140 MG, 2X/DAY
     Route: 048
     Dates: start: 20181207, end: 20181207
  104. HYDROCORTISONE. [Concomitant]
     Active Substance: HYDROCORTISONE
     Dosage: 100 MG, ONCE
     Route: 042
     Dates: start: 20181207, end: 20181207
  105. DIOCTAHEDRAL SMECTITE [Concomitant]
     Dosage: 20 ML, ONCE
     Route: 048
     Dates: start: 20181215, end: 20181220
  106. ALLOPURINOL. [Concomitant]
     Active Substance: ALLOPURINOL
     Dosage: 100 MG, 3X/DAY
     Route: 048
     Dates: start: 20150202, end: 20150202
  107. TRAMADOL. [Concomitant]
     Active Substance: TRAMADOL
     Dosage: 50 MG, ONCE
     Route: 042
     Dates: start: 20150605, end: 20150605
  108. TRAMADOL. [Concomitant]
     Active Substance: TRAMADOL
     Dosage: 50 MG, ONCE
     Route: 042
     Dates: start: 20180430, end: 20180430
  109. DEXTROSE W/POTASSIUM CHLORIDE/SODIUM CHLORIDE [Concomitant]
     Indication: VEIN DISORDER
     Dosage: DEXTROSE 50G/NACL 4.5G/KCL 1.5G IN 1L; 1000MG ONCE
     Route: 042
     Dates: start: 20150128, end: 20150130
  110. MORPHINE [Concomitant]
     Active Substance: MORPHINE
     Dosage: 20 MG, AS NEEDED
     Route: 042
     Dates: start: 20150130, end: 20150130
  111. SODIUM BICARBONATE. [Concomitant]
     Active Substance: SODIUM BICARBONATE
     Indication: BIOPSY BONE MARROW
     Dosage: 40 MG, ONCE
     Route: 042
     Dates: start: 20150130, end: 20150201
  112. DEXTROSE 5% [Concomitant]
     Active Substance: DEXTROSE
     Indication: BIOPSY BONE MARROW
     Dosage: 200 MG, AS NEEDED
     Route: 042
     Dates: start: 20150130, end: 20150130
  113. CEFTAZIDIME. [Concomitant]
     Active Substance: CEFTAZIDIME
     Dosage: 2 GR ONCE
     Route: 042
     Dates: start: 20150203, end: 20150203
  114. DEXTROSE W/POTASSIUM CHLORIDE/SODIUM CHLORIDE [Concomitant]
     Indication: BIOPSY BONE MARROW
     Dosage: DEXTROSE 50G/NACL 4.5G/KCL 1.5G IN 1L; 1000MG ONCE
     Route: 042
     Dates: start: 20150130, end: 20150202
  115. SODIUM CHLORIDE. [Concomitant]
     Active Substance: SODIUM CHLORIDE
     Dosage: 100 ML, 3X/DAY
     Route: 042
     Dates: start: 20150607, end: 20150607
  116. SODIUM CHLORIDE. [Concomitant]
     Active Substance: SODIUM CHLORIDE
     Dosage: 100 ML, ONCE
     Route: 042
     Dates: start: 20150608, end: 20150608
  117. SODIUM CHLORIDE. [Concomitant]
     Active Substance: SODIUM CHLORIDE
     Dosage: 1000 ML, ONCE
     Route: 042
     Dates: start: 20181206, end: 20181206
  118. SODIUM BICARBONATE. [Concomitant]
     Active Substance: SODIUM BICARBONATE
     Dosage: 40 MEQ, SINGLE
     Route: 042
     Dates: start: 20181208, end: 20181213
  119. DESOXIMETASONE. [Concomitant]
     Active Substance: DESOXIMETASONE
     Dosage: 15 G, AS NEEDED
     Route: 023
     Dates: start: 20150702, end: 20180320
  120. LEGALON [Concomitant]
     Active Substance: DIETARY SUPPLEMENT\HERBALS\MILK THISTLE
     Dosage: 140 MG, 3X/DAY
     Route: 048
     Dates: start: 20180428, end: 20180430
  121. LANSOPRAZOLE. [Concomitant]
     Active Substance: LANSOPRAZOLE
     Dosage: 60 MG, 2X/DAY
     Route: 048
     Dates: start: 20170914, end: 20170920
  122. ACETAMINOPHEN. [Concomitant]
     Active Substance: ACETAMINOPHEN
     Dosage: 650 MG, 4X/DAY
     Route: 048
     Dates: start: 20181208, end: 20181208
  123. HYALURONIC ACID [Concomitant]
     Active Substance: HYALURONIC ACID
     Dosage: 0.5 ML, AS NEEDED (OCULAR)
     Route: 047
     Dates: start: 20180425, end: 20180425
  124. AMPICILLIN/SULBACTAM [Concomitant]
     Dosage: 3000 MG, 4X/DAY
     Route: 042
     Dates: start: 20180430, end: 20180501
  125. BACITRACIN. [Concomitant]
     Active Substance: BACITRACIN
     Dosage: 3 MG, 4X/DAY
     Route: 042
     Dates: start: 20181208, end: 20181213
  126. COUGH SYRUP [Concomitant]
     Active Substance: DEXTROMETHORPHAN HYDROBROMIDE\GUAIFENESIN
     Dosage: 20 ML, 3X/DAY
     Route: 048
     Dates: start: 20181212, end: 20181213
  127. ALLOPURINOL. [Concomitant]
     Active Substance: ALLOPURINOL
     Dosage: 200 MG, 2X/DAY
     Route: 048
     Dates: start: 20150128, end: 20150128
  128. TAZOPERAN [Concomitant]
     Dosage: 4.5 G, 2X/DAY
     Route: 042
     Dates: start: 20150606, end: 20150606
  129. DEXTROSE W/POTASSIUM CHLORIDE/SODIUM CHLORIDE [Concomitant]
     Dosage: DEXTROSE 50G/NACL 4.5G/KCL 1.5G IN 1L; 1000MG ONCE
     Route: 042
     Dates: start: 20150604, end: 20150605
  130. DEXTROSE W/POTASSIUM CHLORIDE/SODIUM CHLORIDE [Concomitant]
     Dosage: DEXTROSE 50G/NACL 4.5G/KCL 1.5G IN 1L; 1000MG ONCE
     Route: 042
     Dates: start: 20150607, end: 20150607
  131. DEXTROSE W/POTASSIUM CHLORIDE/SODIUM CHLORIDE [Concomitant]
     Dosage: DEXTROSE ELECTROLYTE/NACL/KCL 20MEQ; 1000MG ONCE
     Route: 042
     Dates: start: 20181206, end: 20181207
  132. SODIUM CHLORIDE. [Concomitant]
     Active Substance: SODIUM CHLORIDE
     Dosage: 500 ML, ONCE
     Route: 042
     Dates: start: 20150507, end: 20150507
  133. CEFDITOREN [Concomitant]
     Active Substance: CEFDITOREN
     Indication: BIOPSY BONE MARROW
     Dosage: 100 MG, 3X/DAY
     Route: 048
     Dates: start: 20150203, end: 20150210
  134. DEXTROSE. [Concomitant]
     Active Substance: DEXTROSE
     Dosage: 1000 ML, ONCE
     Route: 042
     Dates: start: 20181208, end: 20181213
  135. SODIUM BICARBONATE. [Concomitant]
     Active Substance: SODIUM BICARBONATE
     Dosage: 20 ML, ONCE
     Route: 042
     Dates: start: 20150202, end: 20150203
  136. FERROUS SULFATE. [Concomitant]
     Active Substance: FERROUS SULFATE
     Dosage: 512 MG, 2X/DAY
     Route: 048
     Dates: start: 20160923, end: 20161214
  137. TEPRENONE [Concomitant]
     Active Substance: TEPRENONE
     Dosage: 150 MG, 3X/DAY
     Route: 048
     Dates: start: 20161219, end: 20161223

REACTIONS (1)
  - Cellulitis [Recovered/Resolved]

NARRATIVE: CASE EVENT DATE: 20181206
